FAERS Safety Report 9718071 (Version 1)
Quarter: 2013Q4

REPORT INFORMATION
  Report Type: Spontaneous
  Country: US (occurrence: US)
  Receive Date: 20131127
  Receipt Date: 20131127
  Transmission Date: 20140711
  Serious: No
  Sender: FDA-Public Use
  Company Number: US-009507513-1311USA011286

PATIENT
  Age: 53 Year
  Sex: Female

DRUGS (2)
  1. CLARITIN-D [Suspect]
     Indication: NASOPHARYNGITIS
     Dosage: UNK, UNKNOWN
     Route: 048
     Dates: start: 20131119
  2. CLARITIN-D [Suspect]
     Indication: SINUS CONGESTION

REACTIONS (7)
  - Tachyphrenia [Unknown]
  - Tremor [Unknown]
  - Abdominal discomfort [Unknown]
  - Heart rate increased [Unknown]
  - Insomnia [Not Recovered/Not Resolved]
  - Dizziness [Unknown]
  - Drug effect decreased [Unknown]
